FAERS Safety Report 6543537-1 (Version None)
Quarter: 2010Q1

REPORT INFORMATION
  Report Type: 
  Country: None (occurrence: None)
  Receive Date: 20100115
  Receipt Date: 20090921
  Transmission Date: 20100710
  Serious: Yes (Hospitalization)
  Sender: FDA-Public Use
  Company Number: 657853

PATIENT
  Age: 29 Year
  Sex: Female

DRUGS (3)
  1. ROCEPHIN [Suspect]
     Indication: PYREXIA
     Dosage: 1 GRAM INTRAVENOUS
     Route: 042
     Dates: start: 20090918
  2. PRINIVIL [Concomitant]
  3. INSULIN (INSULIN) [Concomitant]

REACTIONS (4)
  - ARTHRALGIA [None]
  - DIZZINESS [None]
  - DYSPNOEA [None]
  - PALPITATIONS [None]
